FAERS Safety Report 6318900-4 (Version None)
Quarter: 2009Q3

REPORT INFORMATION
  Report Type: 
  Country: None (occurrence: None)
  Receive Date: 20090821
  Receipt Date: 20090813
  Transmission Date: 20100115
  Serious: Yes (Congenital Anomaly)
  Sender: FDA-Public Use
  Company Number: US-ABBOTT-09P-163-0586967-00

PATIENT
  Sex: Male
  Weight: 2.919 kg

DRUGS (3)
  1. KALETRA [Suspect]
     Indication: DRUG EXPOSURE DURING PREGNANCY
     Route: 064
  2. TRUVADA [Suspect]
     Indication: DRUG EXPOSURE DURING PREGNANCY
     Route: 064
  3. FOLATE [Concomitant]
     Indication: DRUG EXPOSURE DURING PREGNANCY
     Dosage: SUPPLEMENT
     Route: 064

REACTIONS (2)
  - CONGENITAL NAEVUS [None]
  - PILONIDAL CYST CONGENITAL [None]
